FAERS Safety Report 5345642-4 (Version None)
Quarter: 2007Q2

REPORT INFORMATION
  Report Type: 
  Country: None (occurrence: None)
  Receive Date: 20070605
  Receipt Date: 20061028
  Transmission Date: 20071010
  Serious: No
  Sender: FDA-Public Use
  Company Number: US-ASTRAZENECA-2006UW20808

PATIENT
  Age: 40 Year
  Sex: Male

DRUGS (1)
  1. PRILOSEC [Suspect]
     Indication: DYSPEPSIA
     Route: 048

REACTIONS (1)
  - DYSPEPSIA [None]
